FAERS Safety Report 20349016 (Version 1)
Quarter: 2022Q1

REPORT INFORMATION
  Report Type: Spontaneous
  Country: JP (occurrence: JP)
  Receive Date: 20220119
  Receipt Date: 20220119
  Transmission Date: 20220423
  Serious: Yes (Other)
  Sender: FDA-Public Use
  Company Number: JP-AUROBINDO-AUR-APL-2022-001527

PATIENT
  Age: 73 Year
  Sex: Female

DRUGS (1)
  1. FOLOTYN [Suspect]
     Active Substance: PRALATREXATE
     Indication: Angioimmunoblastic T-cell lymphoma
     Dosage: 30 MILLIGRAM/SQ. METER
     Route: 042

REACTIONS (4)
  - Lymphopenia [Unknown]
  - Blood lactate dehydrogenase increased [Unknown]
  - Cytomegalovirus chorioretinitis [Recovering/Resolving]
  - Vision blurred [Recovering/Resolving]
